FAERS Safety Report 15476822 (Version 6)
Quarter: 2019Q4

REPORT INFORMATION
  Report Type: Report from Study
  Country: US (occurrence: US)
  Receive Date: 20181009
  Receipt Date: 20191031
  Transmission Date: 20200122
  Serious: Yes (Other)
  Sender: FDA-Public Use
  Company Number: PHEH2018US042001

PATIENT
  Age: 17 Year
  Sex: Female

DRUGS (1)
  1. GILENYA [Suspect]
     Active Substance: FINGOLIMOD HYDROCHLORIDE
     Indication: MULTIPLE SCLEROSIS
     Dosage: 0.5 MG, QD
     Route: 048
     Dates: start: 20180928

REACTIONS (10)
  - Paraesthesia oral [Not Recovered/Not Resolved]
  - Bradycardia [Recovering/Resolving]
  - Seizure [Unknown]
  - Tremor [Unknown]
  - Multiple sclerosis relapse [Unknown]
  - Aphasia [Recovered/Resolved]
  - Headache [Unknown]
  - Amenorrhoea [Not Recovered/Not Resolved]
  - Dizziness [Recovered/Resolved]
  - Dysmenorrhoea [Unknown]

NARRATIVE: CASE EVENT DATE: 20180928
